FAERS Safety Report 4480169-3 (Version None)
Quarter: 2004Q4

REPORT INFORMATION
  Report Type: 
  Country: None (occurrence: None)
  Receive Date: 20041020
  Receipt Date: 20030605
  Transmission Date: 20050328
  Serious: Yes (Death, Hospitalization, Disabling)
  Sender: FDA-Public Use
  Company Number: US-MERCK-0306USA00888

PATIENT
  Age: 70 Year
  Sex: Female
  Weight: 87 kg

DRUGS (6)
  1. VIOXX [Suspect]
     Route: 048
     Dates: start: 20010501
  2. MECLIZINE [Concomitant]
     Route: 065
  3. ACCUPRIL [Concomitant]
     Route: 065
  4. CLONIDINE [Concomitant]
     Route: 065
  5. ASPIRIN [Concomitant]
     Route: 065
  6. CEFADROXIL [Concomitant]
     Route: 065

REACTIONS (27)
  - ADVERSE EVENT [None]
  - ANAEMIA [None]
  - ANXIETY [None]
  - BACTERIA URINE IDENTIFIED [None]
  - BRAIN NEOPLASM [None]
  - CHEST WALL PAIN [None]
  - CLOSTRIDIUM COLITIS [None]
  - CORONARY ARTERY DISEASE [None]
  - DEATH [None]
  - DECUBITUS ULCER [None]
  - DEMENTIA [None]
  - DYSARTHRIA [None]
  - FAECALOMA [None]
  - FEEDING DISORDER [None]
  - HEMIPARESIS [None]
  - HYPOTENSION [None]
  - OEDEMA PERIPHERAL [None]
  - ORAL FUNGAL INFECTION [None]
  - OSTEOARTHRITIS [None]
  - PERIPHERAL VASCULAR DISORDER [None]
  - PNEUMONIA [None]
  - RECTAL HAEMORRHAGE [None]
  - RENAL FAILURE [None]
  - RESPIRATORY DISTRESS [None]
  - VENOUS INSUFFICIENCY [None]
  - WOUND INFECTION PSEUDOMONAS [None]
  - WOUND INFECTION STAPHYLOCOCCAL [None]
